FAERS Safety Report 17551792 (Version 1)
Quarter: 2020Q1

REPORT INFORMATION
  Report Type: Spontaneous
  Country: US (occurrence: US)
  Receive Date: 20200317
  Receipt Date: 20200317
  Transmission Date: 20200409
  Serious: No
  Sender: FDA-Public Use
  Company Number: US-JAZZ-2020-US-000434

PATIENT
  Sex: Female

DRUGS (1)
  1. XYREM [Suspect]
     Active Substance: SODIUM OXYBATE
     Indication: PRODUCT USED FOR UNKNOWN INDICATION
     Dosage: THERAPY DETAILS NOT PROVIDED
     Route: 048

REACTIONS (5)
  - Weight decreased [Unknown]
  - Hunger [Unknown]
  - Diarrhoea [Not Recovered/Not Resolved]
  - Enuresis [Not Recovered/Not Resolved]
  - Initial insomnia [Unknown]
